FAERS Safety Report 7931512-1 (Version None)
Quarter: 2011Q4

REPORT INFORMATION
  Report Type: 
  Country: None (occurrence: None)
  Receive Date: 20111121
  Receipt Date: 20111121
  Transmission Date: 20120403
  Serious: Yes (Congenital Anomaly)
  Sender: FDA-Public Use
  Company Number: None

PATIENT
  Age: 3 Day
  Sex: Male
  Weight: 1.8 kg

DRUGS (1)
  1. DULOXETINE HYDROCHLORIDE [Suspect]
     Indication: DEPRESSION
     Dosage: 60 MG
     Route: 048

REACTIONS (2)
  - MATERNAL DRUGS AFFECTING FOETUS [None]
  - VACTERL SYNDROME [None]
